FAERS Safety Report 16730854 (Version 1)
Quarter: 2019Q4

REPORT INFORMATION
  Report Type: Spontaneous
  Country: US (occurrence: US)
  Receive Date: 20190822
  Receipt Date: 20190822
  Transmission Date: 20200122
  Serious: Yes (Hospitalization)
  Sender: FDA-Public Use
  Company Number: None

PATIENT
  Age: 77 Year
  Sex: Male

DRUGS (17)
  1. BALCK CHERRY LIQ [Concomitant]
  2. ASPIRIN. [Concomitant]
     Active Substance: ASPIRIN
  3. SYNTHROID [Concomitant]
     Active Substance: LEVOTHYROXINE SODIUM
  4. METRONIDAZOL [Concomitant]
     Active Substance: METRONIDAZOLE
  5. PROTONIX [Concomitant]
     Active Substance: PANTOPRAZOLE SODIUM
  6. MAG OXIDE [Concomitant]
     Active Substance: MAGNESIUM OXIDE
  7. FLOMAX [Concomitant]
     Active Substance: TAMSULOSIN HYDROCHLORIDE
  8. SANDIMMUNE [Suspect]
     Active Substance: CYCLOSPORINE
     Indication: RENAL TRANSPLANT
     Route: 048
     Dates: start: 20170606
  9. AMLOD/VALSAR [Concomitant]
  10. PRAVACHOL [Concomitant]
     Active Substance: PRAVASTATIN SODIUM
  11. ULORIC [Concomitant]
     Active Substance: FEBUXOSTAT
  12. OSCAL [Concomitant]
     Active Substance: CALCIUM CARBONATE
  13. PLAQUENIL [Concomitant]
     Active Substance: HYDROXYCHLOROQUINE SULFATE
  14. PREDNISONE. [Concomitant]
     Active Substance: PREDNISONE
  15. AMIODARONE [Concomitant]
     Active Substance: AMIODARONE
  16. CENTRUM [Concomitant]
     Active Substance: VITAMINS
  17. SULFASALAZINE DELAYED-RELEASE [Concomitant]
     Active Substance: SULFASALAZINE

REACTIONS (2)
  - Temporal arteritis [None]
  - Cerebrovascular accident [None]

NARRATIVE: CASE EVENT DATE: 20190815
